FAERS Safety Report 21690402 (Version 4)
Quarter: 2023Q2

REPORT INFORMATION
  Report Type: Report from Study
  Country: CA (occurrence: CA)
  Receive Date: 20221206
  Receipt Date: 20230509
  Transmission Date: 20230721
  Serious: Yes (Hospitalization, Other)
  Sender: FDA-Public Use
  Company Number: CA-VER-202200630

PATIENT
  Age: 75 Year
  Sex: Male

DRUGS (2)
  1. TRIPTORELIN PAMOATE [Suspect]
     Active Substance: TRIPTORELIN PAMOATE
     Indication: Prostate cancer
     Route: 030
     Dates: start: 20230118, end: 20230118
  2. TRIPTORELIN PAMOATE [Suspect]
     Active Substance: TRIPTORELIN PAMOATE
     Indication: Prostate cancer
     Dosage: THERAPY ONGOING
     Route: 030
     Dates: start: 20221021, end: 20221021

REACTIONS (4)
  - Fall [Unknown]
  - Prostate cancer [Unknown]
  - Nausea [Unknown]
  - Vomiting [Unknown]
